FAERS Safety Report 4727594-0 (Version None)
Quarter: 2005Q3

REPORT INFORMATION
  Report Type: 
  Country: None (occurrence: None)
  Receive Date: 20050727
  Receipt Date: 20050727
  Transmission Date: 20060218
  Serious: Yes (Hospitalization)
  Sender: FDA-Public Use
  Company Number: None

PATIENT
  Age: 76 Year
  Sex: Male
  Weight: 115 kg

DRUGS (1)
  1. BENADRYL [Suspect]
     Indication: HYPERSENSITIVITY
     Dosage: 50 MG   INTRAMUSCU
     Route: 030
     Dates: start: 20050203, end: 20050203

REACTIONS (5)
  - EYE ROLLING [None]
  - LOSS OF CONSCIOUSNESS [None]
  - NAUSEA [None]
  - TONIC CLONIC MOVEMENTS [None]
  - VISION BLURRED [None]
